FAERS Safety Report 6681503-6 (Version None)
Quarter: 2010Q2

REPORT INFORMATION
  Report Type: 
  Country: None (occurrence: None)
  Receive Date: 20100414
  Receipt Date: 20100407
  Transmission Date: 20101027
  Serious: Yes (Life-Threatening, Hospitalization, Other)
  Sender: FDA-Public Use
  Company Number: US-MERCK-0912USA01653

PATIENT
  Age: 69 Year
  Sex: Female

DRUGS (2)
  1. FOSAMAX [Suspect]
     Indication: OSTEOPOROSIS
     Route: 048
     Dates: start: 20050915, end: 20070806
  2. FOSAMAX PLUS D [Suspect]
     Indication: OSTEOPOROSIS
     Route: 048

REACTIONS (13)
  - ABSCESS [None]
  - ANXIETY [None]
  - CLOSTRIDIAL INFECTION [None]
  - DENTAL CARIES [None]
  - HALLUCINATION [None]
  - HYPERTENSION [None]
  - INFECTION [None]
  - JAW FRACTURE [None]
  - MAJOR DEPRESSION [None]
  - OSTEOMYELITIS [None]
  - OSTEONECROSIS [None]
  - TOOTH FRACTURE [None]
  - WEIGHT INCREASED [None]
